FAERS Safety Report 6139132-9 (Version None)
Quarter: 2009Q2

REPORT INFORMATION
  Report Type: 
  Country: None (occurrence: None)
  Receive Date: 20090401
  Receipt Date: 20081215
  Transmission Date: 20091009
  Serious: Yes (Other)
  Sender: FDA-Public Use
  Company Number: CH-PFIZER INC-2008160413

PATIENT

DRUGS (7)
  1. XANAX [Suspect]
     Indication: ANXIETY
     Dosage: 0.5 MG, 1X/DAY
     Route: 048
     Dates: start: 20030901
  2. CYCLOPHOSPHAMIDE [Suspect]
     Indication: CEREBROVASCULAR DISORDER
     Dosage: 800 MG, 1X/DAY
     Route: 042
     Dates: start: 20040108, end: 20040108
  3. DEPAKENE [Suspect]
     Indication: PARTIAL SEIZURES
     Dosage: 800 MG, 1X/DAY
     Dates: start: 20030901
  4. TAVANIC [Concomitant]
     Dosage: UNK
     Dates: start: 20040202, end: 20040204
  5. PREDNISONE [Concomitant]
     Dosage: UNK
  6. ANTRA [Concomitant]
     Dosage: UNK
  7. SEREVENT [Concomitant]
     Dosage: UNK

REACTIONS (3)
  - CONGENITAL FOOT MALFORMATION [None]
  - DRUG EXPOSURE DURING PREGNANCY [None]
  - SYNDACTYLY [None]
